FAERS Safety Report 24117320 (Version 1)
Quarter: 2024Q3

REPORT INFORMATION
  Report Type: Spontaneous
  Country: TW (occurrence: TW)
  Receive Date: 20240722
  Receipt Date: 20240722
  Transmission Date: 20241017
  Serious: Yes (Hospitalization, Other)
  Sender: AMGEN
  Company Number: TW-PFIZER INC-PV202400092321

PATIENT
  Age: 72 Year
  Sex: Male

DRUGS (1)
  1. ENBREL [Suspect]
     Active Substance: BENZYL ALCOHOL\ETANERCEPT
     Indication: Rheumatoid arthritis
     Dosage: 25 MG, BIW
     Route: 058
     Dates: start: 20111215

REACTIONS (3)
  - Pneumonia [Not Recovered/Not Resolved]
  - Lung infiltration [Not Recovered/Not Resolved]
  - Dyspnoea [Not Recovered/Not Resolved]
